APPROVED DRUG PRODUCT: NORCO
Active Ingredient: ACETAMINOPHEN; HYDROCODONE BITARTRATE
Strength: 325MG;5MG
Dosage Form/Route: TABLET;ORAL
Application: A040099 | Product #001
Applicant: ALLERGAN PHARMACEUTICALS INTERNATIONAL LTD
Approved: Jun 25, 1997 | RLD: No | RS: No | Type: DISCN